FAERS Safety Report 9147514 (Version 3)
Quarter: 2013Q3

REPORT INFORMATION
  Report Type: Spontaneous
  Country: US (occurrence: US)
  Receive Date: 20130307
  Receipt Date: 20130719
  Transmission Date: 20140515
  Serious: Yes (Hospitalization)
  Sender: FDA-Public Use
  Company Number: US-TARO-2013P1002782

PATIENT
  Age: 34 Year
  Sex: Female
  Weight: 81.65 kg

DRUGS (3)
  1. EPIDUO [Suspect]
     Indication: ACNE
     Route: 061
     Dates: start: 20130110, end: 20130304
  2. IUD [Concomitant]
     Route: 015
     Dates: start: 201209
  3. CELEXA [Concomitant]
     Route: 048
     Dates: start: 2006

REACTIONS (6)
  - Hospitalisation [Recovered/Resolved with Sequelae]
  - Alcohol abuse [Unknown]
  - Bipolar I disorder [Not Recovered/Not Resolved]
  - Acute stress disorder [Unknown]
  - Drug abuse [Unknown]
  - Psychiatric symptom [Recovered/Resolved]
